FAERS Safety Report 11670252 (Version 1)
Quarter: 2015Q4

REPORT INFORMATION
  Report Type: Spontaneous
  Country: US (occurrence: US)
  Receive Date: 20151028
  Receipt Date: 20151028
  Transmission Date: 20160304
  Serious: No
  Sender: FDA-Public Use
  Company Number: US-AMGEN-USASP2015110524

PATIENT
  Age: 41 Year
  Sex: Male

DRUGS (1)
  1. ENBREL [Suspect]
     Active Substance: ETANERCEPT
     Indication: PSORIATIC ARTHROPATHY
     Dosage: 1 ML (50 MG), EVERY WEEK
     Route: 058

REACTIONS (6)
  - Vomiting [Unknown]
  - Condition aggravated [Unknown]
  - Malaise [Unknown]
  - Sinus disorder [Unknown]
  - Inappropriate schedule of drug administration [Unknown]
  - Viral infection [Unknown]

NARRATIVE: CASE EVENT DATE: 201510
